FAERS Safety Report 7814320-1 (Version None)
Quarter: 2011Q4

REPORT INFORMATION
  Report Type: 
  Country: None (occurrence: None)
  Receive Date: 20111011
  Receipt Date: 20111003
  Transmission Date: 20120403
  Serious: No
  Sender: FDA-Public Use
  Company Number: 2011-01292

PATIENT
  Age: 59 Year
  Sex: Female
  Weight: 60.3284 kg

DRUGS (4)
  1. ZICAM COLD REMEDY NASAL GEL [Suspect]
     Dosage: A COUPLE DAYS
     Dates: start: 20040101, end: 20050101
  2. ZICAM COLD REMEDY NASAL GEL [Suspect]
     Dosage: A COUPLE DAYS
     Dates: start: 20090101
  3. ASCORBIC ACID [Concomitant]
  4. ECHINACEA [Concomitant]

REACTIONS (2)
  - NASAL DISCOMFORT [None]
  - HYPOSMIA [None]
